FAERS Safety Report 9371663 (Version 2)
Quarter: 2013Q3

REPORT INFORMATION
  Report Type: Spontaneous
  Country: US (occurrence: US)
  Receive Date: 20130627
  Receipt Date: 20130701
  Transmission Date: 20140515
  Serious: No
  Sender: FDA-Public Use
  Company Number: US-PFIZER INC-2013188637

PATIENT
  Age: 85 Year
  Sex: Male
  Weight: 70.3 kg

DRUGS (2)
  1. VORICONAZOLE [Suspect]
     Indication: PULMONARY MYCOSIS
     Dosage: 200 MG, 2X/DAY
     Route: 048
     Dates: start: 2012
  2. DIOVAN [Concomitant]
     Indication: SYSTOLIC HYPERTENSION
     Dosage: UNK

REACTIONS (2)
  - Oedema peripheral [Unknown]
  - Photosensitivity reaction [Unknown]
